FAERS Safety Report 7284049-X (Version None)
Quarter: 2011Q1

REPORT INFORMATION
  Report Type: 
  Country: None (occurrence: None)
  Receive Date: 20110209
  Receipt Date: 20110131
  Transmission Date: 20110831
  Serious: Yes (Hospitalization)
  Sender: FDA-Public Use
  Company Number: US-ASTRAZENECA-2011SE05300

PATIENT
  Sex: Female

DRUGS (11)
  1. CRESTOR [Suspect]
     Indication: BLOOD CHOLESTEROL INCREASED
     Route: 048
  2. VITAMIN D [Concomitant]
  3. FISH OIL [Concomitant]
  4. LISINOPRIL AND HYDROCHLOROTHIAZIDE [Concomitant]
     Dosage: 20/25 MG
  5. PLAVIX [Concomitant]
  6. ALENDRONATE [Concomitant]
     Indication: BONE DISORDER
  7. ALPRAZOLAM [Concomitant]
  8. ASPIRIN [Concomitant]
  9. HYDROCODONE BITARTRATE [Concomitant]
     Dosage: 5MG/500MG
  10. METOPROLOL SUCCINATE EXTENDED RELEASE [Concomitant]
  11. NITROGLYCERIN [Concomitant]

REACTIONS (3)
  - ATRIOVENTRICULAR BLOCK [None]
  - LACRIMATION INCREASED [None]
  - EYE ALLERGY [None]
